FAERS Safety Report 4953987-2 (Version None)
Quarter: 2006Q1

REPORT INFORMATION
  Report Type: 
  Country: None (occurrence: None)
  Receive Date: 20060321
  Receipt Date: 20060309
  Transmission Date: 20060701
  Serious: Yes (Other)
  Sender: FDA-Public Use
  Company Number: HQWYE313913MAR06

PATIENT
  Age: 70 Year
  Sex: Male

DRUGS (15)
  1. RAPAMUNE [Suspect]
     Indication: PROPHYLAXIS AGAINST TRANSPLANT REJECTION
     Dosage: 2 MG 1X PER 1 DAY ORAL; 1 MG 1X PER 1 DAY ORAL
     Route: 048
     Dates: start: 20050526, end: 20050920
  2. RAPAMUNE [Suspect]
     Indication: PROPHYLAXIS AGAINST TRANSPLANT REJECTION
     Dosage: 2 MG 1X PER 1 DAY ORAL; 1 MG 1X PER 1 DAY ORAL
     Route: 048
     Dates: start: 20051019
  3. CELLCEPT [Concomitant]
  4. HYZAAR [Concomitant]
  5. ASPIRIN [Concomitant]
  6. PROSCAR [Concomitant]
  7. PREDNISONE TAB [Concomitant]
  8. PRAVACHOL [Concomitant]
  9. PREVACID [Concomitant]
  10. DIABETA [Concomitant]
  11. FLOMAX [Concomitant]
  12. FOSAMAX [Concomitant]
  13. CENTRUM FORTE (MULTIVITAMIN/MULTIMINERAL) [Concomitant]
  14. MINOCIN [Concomitant]
  15. QUININE SULFATE [Concomitant]

REACTIONS (2)
  - RECURRENT CANCER [None]
  - SQUAMOUS CELL CARCINOMA [None]
